FAERS Safety Report 25934826 (Version 1)
Quarter: 2025Q4

REPORT INFORMATION
  Report Type: Spontaneous
  Country: US (occurrence: US)
  Receive Date: 20251017
  Receipt Date: 20251017
  Transmission Date: 20260118
  Serious: Yes (Other)
  Sender: SECURA BIO
  Company Number: US-SECURA BIO, INC.-SECUR-2025-US002131

PATIENT
  Sex: Male

DRUGS (2)
  1. COPIKTRA [Suspect]
     Active Substance: DUVELISIB
     Indication: Peripheral T-cell lymphoma unspecified
     Dosage: 25 MILLIGRAM, BID
     Route: 048
     Dates: start: 202504
  2. COPIKTRA [Suspect]
     Active Substance: DUVELISIB
     Indication: Adult T-cell lymphoma/leukaemia
     Dosage: 15 MILLIGRAM, QD
     Route: 048

REACTIONS (2)
  - Cytopenia [Unknown]
  - Product use in unapproved indication [Unknown]
